APPROVED DRUG PRODUCT: LUBIPROSTONE
Active Ingredient: LUBIPROSTONE
Strength: 8MCG
Dosage Form/Route: CAPSULE;ORAL
Application: A218640 | Product #001 | TE Code: AB
Applicant: ASCENT PHARMACEUTICALS INC
Approved: Jan 2, 2025 | RLD: No | RS: No | Type: RX